FAERS Safety Report 24372810 (Version 1)
Quarter: 2024Q3

REPORT INFORMATION
  Report Type: Spontaneous
  Country: ES (occurrence: ES)
  Receive Date: 20240927
  Receipt Date: 20240927
  Transmission Date: 20241016
  Serious: Yes (Hospitalization, Other)
  Sender: BAXTER
  Company Number: None

PATIENT
  Age: 79 Year
  Sex: Female

DRUGS (3)
  1. BORTEZOMIB [Suspect]
     Active Substance: BORTEZOMIB
     Indication: Primary amyloidosis
     Dosage: DOSAGE TEXT: 1.3 MG/M2, BORTEZOMIB (2928A) , DURATION: 55 DAYS
     Route: 058
     Dates: start: 20240625, end: 20240818
  2. DEXAMETHASONE [Concomitant]
     Active Substance: DEXAMETHASONE
     Indication: Primary amyloidosis
     Dosage: DEXAMETHASONE (722A)
     Route: 041
     Dates: start: 20240625, end: 20240818
  3. DARZALEX [Concomitant]
     Active Substance: DARATUMUMAB
     Indication: Primary amyloidosis
     Dosage: DARZALEX 1 800 MG SOLUTION FOR INJECTION 1 VIAL OF 15 ML, DURATION: 55 DAYS
     Route: 058
     Dates: start: 20240625, end: 20240818

REACTIONS (1)
  - Hepatic cytolysis [Recovering/Resolving]

NARRATIVE: CASE EVENT DATE: 20240823
